FAERS Safety Report 11797827 (Version 1)
Quarter: 2015Q4

REPORT INFORMATION
  Report Type: Spontaneous
  Country: CN (occurrence: CN)
  Receive Date: 20151203
  Receipt Date: 20151203
  Transmission Date: 20160305
  Serious: Yes (Hospitalization, Other)
  Sender: FDA-Public Use
  Company Number: CN-GLAXOSMITHKLINE-CN2015GSK169146

PATIENT
  Age: 38 Year
  Sex: Male

DRUGS (2)
  1. LAMOTRIGINE. [Suspect]
     Active Substance: LAMOTRIGINE
     Indication: EPILEPSY
     Dosage: 25 MG, TID
  2. LAMOTRIGINE. [Suspect]
     Active Substance: LAMOTRIGINE
     Indication: DIZZINESS
     Dosage: 50 MG, TID

REACTIONS (9)
  - Rash erythematous [Unknown]
  - Condition aggravated [Unknown]
  - Pigmentation disorder [Unknown]
  - Dermatitis exfoliative [Recovered/Resolved]
  - Pharyngeal oedema [Unknown]
  - Pruritus [Unknown]
  - Dyspnoea [Unknown]
  - Treatment noncompliance [Unknown]
  - Drug eruption [Unknown]
